FAERS Safety Report 7580860-6 (Version None)
Quarter: 2011Q2

REPORT INFORMATION
  Report Type: 
  Country: None (occurrence: None)
  Receive Date: 20110622
  Receipt Date: 20110607
  Transmission Date: 20111010
  Serious: Yes (Hospitalization)
  Sender: FDA-Public Use
  Company Number: 2011MA007081

PATIENT
  Age: 42 Year
  Sex: Female

DRUGS (2)
  1. DICLOFENAC SODIUM [Suspect]
     Dosage: 75 MG; BID; PO
     Route: 048
  2. SERTRALINE HYDROCHLORIDE [Suspect]
     Dosage: 100 MG; QD; PO
     Route: 048

REACTIONS (4)
  - DIARRHOEA [None]
  - GASTRIC ULCER [None]
  - VOMITING [None]
  - NAUSEA [None]
